FAERS Safety Report 6710009-0 (Version None)
Quarter: 2010Q2

REPORT INFORMATION
  Report Type: 
  Country: None (occurrence: None)
  Receive Date: 20100503
  Receipt Date: 20100503
  Transmission Date: 20101027
  Serious: Yes (Other)
  Sender: FDA-Public Use
  Company Number: None

PATIENT
  Age: 9 Month
  Sex: Female
  Weight: 9.5255 kg

DRUGS (1)
  1. TYLENOL (CAPLET) [Suspect]
     Indication: EAR INFECTION
     Dosage: .8 +.4 EVERY 4 HOURS PO
     Route: 048
     Dates: start: 20100310, end: 20100501

REACTIONS (4)
  - HYPERSOMNIA [None]
  - PRODUCT QUALITY ISSUE [None]
  - PYREXIA [None]
  - VIRAL INFECTION [None]
